FAERS Safety Report 6712217-1 (Version None)
Quarter: 2010Q2

REPORT INFORMATION
  Report Type: 
  Country: None (occurrence: None)
  Receive Date: 20100505
  Receipt Date: 20100428
  Transmission Date: 20101027
  Serious: Yes (Hospitalization, Other)
  Sender: FDA-Public Use
  Company Number: US-ABBOTT-10P-163-0625286-00

PATIENT
  Sex: Female
  Weight: 49.486 kg

DRUGS (2)
  1. HUMIRA [Suspect]
     Indication: CROHN'S DISEASE
     Route: 058
     Dates: start: 20090715, end: 20100101
  2. HUMIRA [Suspect]
     Route: 058
     Dates: start: 20100101

REACTIONS (4)
  - CROHN'S DISEASE [None]
  - PAIN [None]
  - RENAL FAILURE [None]
  - WEIGHT DECREASED [None]
